FAERS Safety Report 7970980-6 (Version None)
Quarter: 2011Q4

REPORT INFORMATION
  Report Type: 
  Country: None (occurrence: None)
  Receive Date: 20111212
  Receipt Date: 20111206
  Transmission Date: 20120403
  Serious: Yes (Other)
  Sender: FDA-Public Use
  Company Number: DE-BRISTOL-MYERS SQUIBB COMPANY-16235350

PATIENT
  Age: 22 Year
  Sex: Female

DRUGS (2)
  1. FERRUM [Concomitant]
     Route: 048
  2. ABILIFY [Suspect]
     Indication: SCHIZOPHRENIA
     Dosage: 6NOV11,24NOV11 INCREASED TO 24MG/DAY
     Route: 048
     Dates: start: 20080101

REACTIONS (5)
  - PREMATURE LABOUR [None]
  - PREGNANCY [None]
  - CYSTITIS [None]
  - ANAEMIA [None]
  - LIVE BIRTH [None]
